FAERS Safety Report 4358017-1 (Version None)
Quarter: 2004Q2

REPORT INFORMATION
  Report Type: 
  Country: None (occurrence: None)
  Receive Date: 20040513
  Receipt Date: 20040504
  Transmission Date: 20050107
  Serious: Yes (Death, Hospitalization, Other)
  Sender: FDA-Public Use
  Company Number: A-CH2003-03755

PATIENT
  Age: 73 Year
  Sex: Female

DRUGS (13)
  1. TRACLEER [Suspect]
     Indication: PULMONARY HYPERTENSION
     Dosage: SEE IMAGE
     Route: 048
     Dates: start: 20031021, end: 20031112
  2. TRACLEER [Suspect]
     Indication: PULMONARY HYPERTENSION
     Dosage: SEE IMAGE
     Route: 048
     Dates: start: 20040128, end: 20040331
  3. TRACLEER [Suspect]
     Indication: PULMONARY HYPERTENSION
     Dosage: SEE IMAGE
     Route: 048
     Dates: start: 20030929
  4. HEPARIN [Concomitant]
  5. ACETYLSALICYLIC ACID SRT [Concomitant]
  6. ERYTHROPOIETIN (ERYTHROPOIETIN) [Concomitant]
  7. PANTOZOL (PANTOPRAZOLE SODIUM) [Concomitant]
  8. PANKERON (PANCREATIN) [Concomitant]
  9. NOVAMIN (PROCHLORPERAZINE) [Concomitant]
  10. TILIDINE (TILIDINE) [Concomitant]
  11. PANGROL ^BERLIN-CHEMIE^ (AMYLASE, BRINASE, LIPASE, PANCREATIN) [Concomitant]
  12. LOPEDIUM (LOPERAMIDE HYDROCHLORIDE) [Concomitant]
  13. RAMIPRIL [Concomitant]

REACTIONS (14)
  - ANAEMIA [None]
  - CONDITION AGGRAVATED [None]
  - DUODENAL ULCER [None]
  - DUODENITIS [None]
  - FALL [None]
  - GASTRITIS [None]
  - GASTROENTERITIS BACTERIAL [None]
  - GASTROINTESTINAL HAEMORRHAGE [None]
  - HAEMATEMESIS [None]
  - MELAENA [None]
  - MOBILITY DECREASED [None]
  - NAUSEA [None]
  - OESOPHAGITIS [None]
  - PELVIC FRACTURE [None]
